FAERS Safety Report 5480797-2 (Version None)
Quarter: 2007Q4

REPORT INFORMATION
  Report Type: 
  Country: None (occurrence: None)
  Receive Date: 20071009
  Receipt Date: 20071001
  Transmission Date: 20080405
  Serious: Yes (Other)
  Sender: FDA-Public Use
  Company Number: TR-ROXANE LABORATORIES, INC-2007-BP-22203RO

PATIENT
  Age: 21 Year
  Sex: Male

DRUGS (6)
  1. METHOTREXATE [Suspect]
     Indication: SPONDYLITIS
  2. METHOTREXATE [Suspect]
     Dates: start: 20050501
  3. SULFASALAZINE [Suspect]
     Indication: SPONDYLITIS
     Dates: end: 20050501
  4. NONSTERIODAL ANTI-INFLAMMATORY DRUGS [Suspect]
     Indication: SPONDYLITIS
     Dates: end: 20050501
  5. ISONIAZID [Suspect]
     Indication: TUBERCULOSIS SKIN TEST POSITIVE
  6. ETANERCEPT [Suspect]
     Indication: SPONDYLITIS
     Dates: start: 20050501

REACTIONS (3)
  - CARCINOID TUMOUR [None]
  - DRUG INEFFECTIVE [None]
  - ECTOPIC ACTH SYNDROME [None]
